FAERS Safety Report 11365271 (Version 3)
Quarter: 2017Q2

REPORT INFORMATION
  Report Type: Report from Study
  Country: US (occurrence: US)
  Receive Date: 20150811
  Receipt Date: 20170628
  Transmission Date: 20170829
  Serious: Yes (Hospitalization)
  Sender: FDA-Public Use
  Company Number: US-ALEXION-A201502965

PATIENT
  Age: 30 Year
  Sex: Female

DRUGS (8)
  1. RIFAMPIN. [Concomitant]
     Active Substance: RIFAMPIN
     Dosage: UNK
     Route: 048
     Dates: start: 20150220
  2. ATIVAN [Concomitant]
     Active Substance: LORAZEPAM
     Indication: VOMITING
     Dosage: 1 MG, PRN
     Route: 048
  3. RIFAMPIN. [Concomitant]
     Active Substance: RIFAMPIN
     Dosage: UNK
     Route: 042
     Dates: start: 201502
  4. RIFAMPIN. [Concomitant]
     Active Substance: RIFAMPIN
     Indication: PROPHYLAXIS
     Dosage: UNK
     Route: 048
     Dates: end: 201502
  5. NO DRUG [Suspect]
     Active Substance: UNSPECIFIED INGREDIENT
     Dosage: 1200 MG, Q2W
     Route: 042
     Dates: start: 20150306
  6. NO DRUG [Suspect]
     Active Substance: UNSPECIFIED INGREDIENT
     Indication: HAEMOLYTIC URAEMIC SYNDROME
     Dosage: 900 MG, QW
     Route: 042
     Dates: start: 20150206, end: 20150227
  7. PRENATAL VITAMINS                  /07426201/ [Concomitant]
     Active Substance: ASCORBIC ACID\BIOTIN\MINERALS\NIACIN\RETINOL\TOCOPHEROL\VITAMIN B\VITAMIN D
     Indication: VITAMIN SUPPLEMENTATION
     Dosage: 1 TAB, QD
     Route: 048
  8. ATIVAN [Concomitant]
     Active Substance: LORAZEPAM
     Indication: NAUSEA
     Dosage: UNK
     Route: 042
     Dates: start: 20150214, end: 20150220

REACTIONS (1)
  - Renal impairment [Recovered/Resolved]

NARRATIVE: CASE EVENT DATE: 20150131
